FAERS Safety Report 4510459-7 (Version None)
Quarter: 2004Q4

REPORT INFORMATION
  Report Type: 
  Country: None (occurrence: None)
  Receive Date: 20041124
  Receipt Date: 20041104
  Transmission Date: 20050328
  Serious: Yes (Hospitalization)
  Sender: FDA-Public Use
  Company Number: JP-GLAXOSMITHKLINE-B0351036A

PATIENT
  Age: 82 Year
  Sex: Female
  Weight: 48 kg

DRUGS (4)
  1. ZANTAC [Suspect]
     Indication: PREMEDICATION
     Dosage: 50MG PER DAY
     Route: 042
     Dates: start: 20021209, end: 20041027
  2. TAXOL [Concomitant]
     Route: 042
  3. DECADRON [Concomitant]
     Indication: PREMEDICATION
     Dosage: 10MG PER DAY
     Route: 042
     Dates: start: 20041027
  4. NIPOLAZIN [Concomitant]
     Indication: PREMEDICATION
     Dosage: 3MG PER DAY
     Route: 048
     Dates: start: 20041027

REACTIONS (1)
  - ANAPHYLACTIC SHOCK [None]
